FAERS Safety Report 9271253 (Version 2)
Quarter: 2013Q3

REPORT INFORMATION
  Report Type: Report from Study
  Country: CA (occurrence: CA)
  Receive Date: 20130506
  Receipt Date: 20130722
  Transmission Date: 20140515
  Serious: Yes (Hospitalization)
  Sender: FDA-Public Use
  Company Number: CA-ELI_LILLY_AND_COMPANY-CA201304007754

PATIENT
  Age: 57 Year
  Sex: Female

DRUGS (9)
  1. TERIPARATIDE [Suspect]
     Indication: OSTEOPOROSIS
     Dosage: 20UG, DAILY
     Route: 058
     Dates: start: 20110923, end: 20130417
  2. TERIPARATIDE [Suspect]
     Dosage: 20UG, DAILY
     Route: 058
     Dates: start: 20130422
  3. PRADAX [Concomitant]
     Dosage: UNK
  4. DILAUDID [Concomitant]
     Dosage: UNK
  5. TYLENOL                            /00020001/ [Concomitant]
     Dosage: UNK
  6. IRON [Concomitant]
     Dosage: UNK
  7. VITAMIN D [Concomitant]
     Dosage: UNK
  8. CALCIUM [Concomitant]
     Dosage: UNK
  9. DIOVAN [Concomitant]
     Dosage: UNK

REACTIONS (1)
  - Necrosis ischaemic [Recovering/Resolving]
